FAERS Safety Report 17746668 (Version 3)
Quarter: 2020Q2

REPORT INFORMATION
  Report Type: Report from Study
  Country: US (occurrence: US)
  Receive Date: 20200505
  Receipt Date: 20200625
  Transmission Date: 20200714
  Serious: Yes (Hospitalization)
  Sender: FDA-Public Use
  Company Number: US-EISAI MEDICAL RESEARCH-EC-2019-064885

PATIENT
  Age: 74 Year
  Sex: Female
  Weight: 57 kg

DRUGS (28)
  1. KEYTRUDA [Suspect]
     Active Substance: PEMBROLIZUMAB
     Indication: PRODUCT USED FOR UNKNOWN INDICATION
     Dosage: FREQUENCY AND DOSE UNKNOWN, ON HOLD FOR WEEK
     Route: 041
     Dates: end: 201912
  2. SIMVASTATIN. [Concomitant]
     Active Substance: SIMVASTATIN
  3. ZYRTEC [Concomitant]
     Active Substance: CETIRIZINE HYDROCHLORIDE
  4. SYNTHROID [Concomitant]
     Active Substance: LEVOTHYROXINE SODIUM
  5. LISINOPRIL. [Concomitant]
     Active Substance: LISINOPRIL
  6. GARLIC. [Concomitant]
     Active Substance: GARLIC
  7. LETROZOLE. [Concomitant]
     Active Substance: LETROZOLE
  8. LORAZEPAM. [Concomitant]
     Active Substance: LORAZEPAM
  9. LENVIMA [Suspect]
     Active Substance: LENVATINIB
     Route: 048
     Dates: start: 202001, end: 2020
  10. LENVIMA [Suspect]
     Active Substance: LENVATINIB
     Route: 048
     Dates: start: 20200318, end: 20200421
  11. MULTIVITAMIN [Concomitant]
     Active Substance: VITAMINS
  12. LEVOTHYROXINE. [Concomitant]
     Active Substance: LEVOTHYROXINE
  13. LENVIMA [Suspect]
     Active Substance: LENVATINIB
     Indication: ENDOMETRIAL CANCER
     Route: 048
     Dates: start: 20191028, end: 201912
  14. AMLODIPINE [Suspect]
     Active Substance: AMLODIPINE BESYLATE
     Indication: HYPERTENSION
     Dosage: UNKNOWN DOSE AND FREQUENCY
  15. LISINOPRIL-HCTZ [Concomitant]
     Active Substance: HYDROCHLOROTHIAZIDE\LISINOPRIL
  16. POTASSIUM [Concomitant]
     Active Substance: POTASSIUM
  17. VITAMIN B6 [Concomitant]
     Active Substance: PYRIDOXINE HYDROCHLORIDE
  18. LENVIMA [Suspect]
     Active Substance: LENVATINIB
     Route: 048
     Dates: start: 201912, end: 202001
  19. LENVIMA [Suspect]
     Active Substance: LENVATINIB
     Route: 048
     Dates: start: 2020, end: 202006
  20. KEYTRUDA [Suspect]
     Active Substance: PEMBROLIZUMAB
     Dosage: FREQUENCY AND DOSE UNKNOWN
     Route: 041
     Dates: start: 201912
  21. AUGMENTIN [Concomitant]
     Active Substance: AMOXICILLIN\CLAVULANATE POTASSIUM
  22. ASPIRIN. [Concomitant]
     Active Substance: ASPIRIN
  23. CRANBERRY. [Concomitant]
     Active Substance: CRANBERRY
  24. VITAMIN B12 [Concomitant]
     Active Substance: CYANOCOBALAMIN
  25. CITRACAL WITH VITAMIN D [Concomitant]
  26. HCTZ [Suspect]
     Active Substance: HYDROCHLOROTHIAZIDE
     Indication: PRODUCT USED FOR UNKNOWN INDICATION
     Dosage: DOSE AND FREQUENCY UNKNOWN
     Route: 065
     Dates: end: 202003
  27. ONDANSETRON [Concomitant]
     Active Substance: ONDANSETRON
  28. FUROSEMIDE. [Concomitant]
     Active Substance: FUROSEMIDE

REACTIONS (11)
  - Blood potassium decreased [Unknown]
  - Oedema peripheral [Unknown]
  - Platelet count decreased [Unknown]
  - Hypertension [Unknown]
  - Cerebrovascular accident [Unknown]
  - Laboratory test abnormal [Unknown]
  - Cough [Unknown]
  - Oedema peripheral [Unknown]
  - Nausea [Unknown]
  - Neuropathy peripheral [Unknown]
  - Rhinorrhoea [Unknown]

NARRATIVE: CASE EVENT DATE: 20191029
